FAERS Safety Report 9377227 (Version 2)
Quarter: 2013Q3

REPORT INFORMATION
  Report Type: Spontaneous
  Country: CA (occurrence: CA)
  Receive Date: 20130701
  Receipt Date: 20130827
  Transmission Date: 20140515
  Serious: No
  Sender: FDA-Public Use
  Company Number: CA-ASTELLAS-2013US006732

PATIENT
  Age: 75 Year
  Sex: Female
  Weight: 104 kg

DRUGS (9)
  1. VESICARE [Suspect]
     Indication: HYPERTONIC BLADDER
     Dosage: 25 MG, UID/QD
     Route: 048
     Dates: start: 20130619
  2. MYRBETRIQ [Suspect]
     Indication: PRODUCT USED FOR UNKNOWN INDICATION
     Dosage: UNK
     Route: 065
  3. CYMBALTA [Concomitant]
     Indication: DEPRESSION
     Dosage: 60 MG, UNKNOWN/D
     Route: 065
     Dates: start: 2012
  4. ATENOLOL [Concomitant]
     Indication: CARDIAC DISORDER
     Dosage: 50 MG, UNKNOWN/D
     Route: 048
     Dates: start: 2005
  5. PANTOPRAZOLE [Concomitant]
     Indication: GASTROINTESTINAL DISORDER
     Dosage: 40 MG, UNKNOWN/D
     Route: 048
     Dates: start: 2010
  6. ZOPICLONE [Concomitant]
     Indication: SLEEP DISORDER
     Dosage: 7.5 MG, UNKNOWN/D
     Route: 048
     Dates: start: 2012
  7. PRADAXA [Concomitant]
     Indication: ANTICOAGULANT THERAPY
     Dosage: 300 MG, UNKNOWN/D
     Route: 048
     Dates: start: 2012
  8. LYRICA [Concomitant]
     Indication: FIBROMYALGIA
     Dosage: 150 MG, UNKNOWN/D
     Route: 048
     Dates: start: 2012
  9. HYDROMORPHONE [Concomitant]
     Indication: PAIN
     Dosage: 25 MG, UNKNOWN/D
     Route: 065

REACTIONS (3)
  - Dry mouth [Not Recovered/Not Resolved]
  - Constipation [Not Recovered/Not Resolved]
  - Headache [Not Recovered/Not Resolved]
